FAERS Safety Report 5605231-0 (Version None)
Quarter: 2008Q1

REPORT INFORMATION
  Report Type: 
  Country: None (occurrence: None)
  Receive Date: 20080128
  Receipt Date: 20080116
  Transmission Date: 20080703
  Serious: Yes (Other)
  Sender: FDA-Public Use
  Company Number: FR-PFIZER INC-2008006995

PATIENT
  Sex: Male

DRUGS (1)
  1. CHANTIX [Suspect]

REACTIONS (3)
  - DEPRESSION [None]
  - MORBID THOUGHTS [None]
  - WEIGHT DECREASED [None]
